FAERS Safety Report 8041064-6 (Version None)
Quarter: 2012Q1

REPORT INFORMATION
  Report Type: 
  Country: None (occurrence: None)
  Receive Date: 20120112
  Receipt Date: 20120105
  Transmission Date: 20120608
  Serious: Yes (Hospitalization)
  Sender: FDA-Public Use
  Company Number: US-CELGENEUS-163-21880-11061117

PATIENT
  Sex: Female
  Weight: 67 kg

DRUGS (7)
  1. REVLIMID [Suspect]
     Dosage: 15 MILLIGRAM
     Route: 048
     Dates: start: 20110105
  2. ZOCOR [Concomitant]
     Indication: BLOOD CHOLESTEROL INCREASED
     Dosage: 40 MILLIGRAM
     Route: 048
  3. ATIVAN [Concomitant]
     Indication: ANXIETY
     Dosage: 1 MILLIGRAM
     Route: 048
  4. MORPHINE SULFATE [Concomitant]
     Indication: PAIN
     Dosage: 30 MILLIGRAM
     Route: 048
  5. REVLIMID [Suspect]
     Route: 048
     Dates: start: 20110701, end: 20110819
  6. THYROID EXTRACT [Concomitant]
     Indication: HYPOTHYROIDISM
     Dosage: 120 MILLIGRAM
     Route: 048
  7. DECADRON [Concomitant]
     Indication: MULTIPLE MYELOMA
     Dosage: 40 MILLIGRAM
     Route: 048

REACTIONS (3)
  - MENTAL STATUS CHANGES [None]
  - ANXIETY [None]
  - DYSPNOEA [None]
